FAERS Safety Report 4945083-5 (Version None)
Quarter: 2006Q1

REPORT INFORMATION
  Report Type: 
  Country: None (occurrence: None)
  Receive Date: 20060316
  Receipt Date: 20060306
  Transmission Date: 20060701
  Serious: Yes (Hospitalization)
  Sender: FDA-Public Use
  Company Number: PHNR2006AU00575

PATIENT
  Age: 24 Year
  Sex: Female

DRUGS (3)
  1. SYNTOCINON [Suspect]
     Route: 042
     Dates: start: 20050106, end: 20050106
  2. LIGNOCAINE [Suspect]
     Route: 008
     Dates: start: 20050106, end: 20050106
  3. LABETALOL HYDROCHLORIDE [Suspect]
     Indication: ESSENTIAL HYPERTENSION
     Dosage: 100 MG, ONCE/SINGLE
     Route: 048
     Dates: start: 20050106, end: 20050106

REACTIONS (3)
  - CONVULSION [None]
  - HYPERTENSION [None]
  - LOSS OF CONSCIOUSNESS [None]
